FAERS Safety Report 25268239 (Version 1)
Quarter: 2025Q2

REPORT INFORMATION
  Report Type: Report from Study
  Country: US (occurrence: US)
  Receive Date: 20250505
  Receipt Date: 20250505
  Transmission Date: 20250717
  Serious: No
  Sender: BIOVITRUM
  Company Number: US-BIOVITRUM-2025-US-006103

PATIENT
  Age: 64 Year
  Sex: Male

DRUGS (1)
  1. KINERET [Suspect]
     Active Substance: ANAKINRA
     Indication: Polyarthritis
     Route: 058
     Dates: start: 20250404, end: 20250424

REACTIONS (6)
  - Rash [Unknown]
  - Burning sensation [Unknown]
  - Inflammation [Unknown]
  - Contusion [Unknown]
  - Pruritus [Unknown]
  - Intentional product misuse [Recovered/Resolved]

NARRATIVE: CASE EVENT DATE: 20250404
